FAERS Safety Report 7422156-9 (Version None)
Quarter: 2011Q2

REPORT INFORMATION
  Report Type: 
  Country: None (occurrence: None)
  Receive Date: 20110418
  Receipt Date: 20110223
  Transmission Date: 20111010
  Serious: Yes (Hospitalization, Other)
  Sender: FDA-Public Use
  Company Number: US-BAYER-201022993NA

PATIENT
  Age: 50 Year
  Sex: Female
  Weight: 108.84 kg

DRUGS (6)
  1. HYDROCHLOROTHIAZIDE [Concomitant]
  2. LISINOPRIL [Concomitant]
  3. YASMIN [Suspect]
     Indication: PRODUCT USED FOR UNKNOWN INDICATION
     Route: 048
     Dates: start: 20040201
  4. LEVOXYL [Concomitant]
     Dosage: 0.15 MG, UNK
  5. ZESTRIL [Concomitant]
  6. IRON SULFATETHIAMIN COMPOUND TAB [Concomitant]

REACTIONS (3)
  - DEEP VEIN THROMBOSIS [None]
  - HAEMORRHAGE INTRACRANIAL [None]
  - APHASIA [None]
